FAERS Safety Report 5117287-2 (Version None)
Quarter: 2006Q3

REPORT INFORMATION
  Report Type: 
  Country: None (occurrence: None)
  Receive Date: 20060929
  Receipt Date: 20060705
  Transmission Date: 20061208
  Serious: Yes (Other)
  Sender: FDA-Public Use
  Company Number: US-BAYER-200612842BCC

PATIENT
  Age: 21 Year
  Sex: Male
  Weight: 86 kg

DRUGS (1)
  1. E.S. BAYER BACK + BODY PAIN [Suspect]
     Indication: CHEST PAIN
     Dosage: UNIT DOSE: 500 MG
     Route: 048
     Dates: start: 20060622, end: 20060705

REACTIONS (1)
  - HAEMOPTYSIS [None]
